FAERS Safety Report 5232813-0 (Version None)
Quarter: 2007Q1

REPORT INFORMATION
  Report Type: 
  Country: None (occurrence: None)
  Receive Date: 20070206
  Receipt Date: 20070206
  Transmission Date: 20070707
  Serious: Yes (Life-Threatening, Hospitalization)
  Sender: FDA-Public Use
  Company Number: None

PATIENT
  Age: 65 Year
  Sex: Male
  Weight: 92.9874 kg

DRUGS (1)
  1. RITUXIMAB  GENENTECH, INC. [Suspect]
     Indication: IDIOPATHIC THROMBOCYTOPENIC PURPURA
     Dosage: 800MG/M2   1 PER WEEK  IV DRIP
     Route: 041
     Dates: start: 20070124, end: 20070124

REACTIONS (1)
  - MYOCARDIAL INFARCTION [None]
